FAERS Safety Report 7021279-6 (Version None)
Quarter: 2010Q3

REPORT INFORMATION
  Report Type: 
  Country: None (occurrence: None)
  Receive Date: 20100927
  Receipt Date: 20100201
  Transmission Date: 20110219
  Serious: Yes (Life-Threatening, Hospitalization)
  Sender: FDA-Public Use
  Company Number: IPC201002-000012

PATIENT
  Age: 81 Year
  Sex: Male
  Weight: 58 kg

DRUGS (7)
  1. ATENOLOL [Suspect]
     Indication: HYPERTENSION
     Dosage: 50MG BID, ORAL
     Route: 048
     Dates: start: 19900101, end: 20080819
  2. METFORMIN HCL [Suspect]
     Indication: TYPE 2 DIABETES MELLITUS
     Dosage: 1000MG BID, ORAL
     Route: 048
     Dates: start: 20000101, end: 20080813
  3. GLIMEPIRIDE [Suspect]
     Indication: TYPE 2 DIABETES MELLITUS
     Dosage: 2MG TABLET QD, ORAL
     Route: 048
     Dates: start: 20020101, end: 20080813
  4. ISOSORBIDE DINITRATE [Concomitant]
  5. SPIRONOLACTONE + FUROSEMIDE [Concomitant]
  6. FERROUS GLYCINE SULFATE [Concomitant]
  7. MEDAZEPAM [Concomitant]

REACTIONS (2)
  - DRUG INTERACTION [None]
  - HYPOGLYCAEMIA [None]
